FAERS Safety Report 4715038-4 (Version None)
Quarter: 2005Q2

REPORT INFORMATION
  Report Type: 
  Country: None (occurrence: None)
  Receive Date: 20050630
  Receipt Date: 20050518
  Transmission Date: 20051028
  Serious: Yes (Death, Hospitalization, Other)
  Sender: FDA-Public Use
  Company Number: 214255

PATIENT
  Age: 57 Year
  Sex: Female
  Weight: 79.8 kg

DRUGS (15)
  1. AVASTIN [Suspect]
     Indication: RECTAL CANCER
     Dosage: 400 MG, Q2W, INTRAVENOUS
     Route: 042
     Dates: start: 20050503, end: 20050503
  2. ELOXATIN [Concomitant]
  3. FLUOROURACIL [Concomitant]
  4. LEUCOVORIN CALCIUM [Concomitant]
  5. AVINZA [Concomitant]
  6. HYDROCODONE BITARTRATE [Concomitant]
  7. MAGIC MOUTH WASH (INGREDIENTS UNK) (MOUTHWASH NOS) [Concomitant]
  8. TIAZAC [Concomitant]
  9. TERAZOSIN (TERAZOSIN HYDROCHLORIDE) [Concomitant]
  10. PROPRANOLOL [Concomitant]
  11. ARANESP [Concomitant]
  12. MAGNESIUM SULFATE [Concomitant]
  13. CALCIUM (CALCIUM NOS) [Concomitant]
  14. KYTRIL [Concomitant]
  15. ALOXI (PALONOSETRON) [Concomitant]

REACTIONS (1)
  - CEREBROVASCULAR ACCIDENT [None]
